FAERS Safety Report 23734189 (Version 1)
Quarter: 2024Q2

REPORT INFORMATION
  Report Type: Spontaneous
  Country: GB (occurrence: GB)
  Receive Date: 20240412
  Receipt Date: 20240412
  Transmission Date: 20240716
  Serious: Yes (Other)
  Sender: FDA-Public Use
  Company Number: GB-MHRA-MED-202403270903145230-JRVQT

PATIENT
  Sex: Female

DRUGS (1)
  1. MIRTAZAPINE [Suspect]
     Active Substance: MIRTAZAPINE
     Indication: Depression
     Dosage: 30 MILLIGRAM, ONCE A DAY
     Route: 065

REACTIONS (5)
  - Bruxism [Not Recovered/Not Resolved]
  - Neurological symptom [Recovered/Resolved with Sequelae]
  - Sleep paralysis [Recovered/Resolved]
  - Insomnia [Recovered/Resolved]
  - Hypomania [Recovered/Resolved]
